FAERS Safety Report 16959247 (Version 1)
Quarter: 2019Q4

REPORT INFORMATION
  Report Type: Spontaneous
  Country: US (occurrence: US)
  Receive Date: 20191024
  Receipt Date: 20191024
  Transmission Date: 20200122
  Serious: No
  Sender: FDA-Public Use
  Company Number: US-JNJFOC-20191020462

PATIENT
  Sex: Female
  Weight: 60.38 kg

DRUGS (2)
  1. PEPCID AC [Concomitant]
     Active Substance: FAMOTIDINE
     Indication: GASTROOESOPHAGEAL REFLUX DISEASE
     Route: 065
     Dates: start: 20190922
  2. PEPCID AC [Suspect]
     Active Substance: FAMOTIDINE
     Indication: GASTROOESOPHAGEAL REFLUX DISEASE
     Dosage: DATE LAST USED: 25-SEP-2019
     Route: 048
     Dates: start: 20190921

REACTIONS (5)
  - Hyperhidrosis [Not Recovered/Not Resolved]
  - Nasopharyngitis [Recovered/Resolved]
  - Feeling hot [Not Recovered/Not Resolved]
  - Chills [Recovered/Resolved]
  - Cold sweat [Not Recovered/Not Resolved]

NARRATIVE: CASE EVENT DATE: 20190922
